FAERS Safety Report 6862812-4 (Version None)
Quarter: 2010Q3

REPORT INFORMATION
  Report Type: 
  Country: None (occurrence: None)
  Receive Date: 20100721
  Receipt Date: 20100630
  Transmission Date: 20110219
  Serious: Yes (Life-Threatening, Hospitalization, Disabling)
  Sender: FDA-Public Use
  Company Number: A0805949A

PATIENT
  Age: 57 Year
  Sex: Male
  Weight: 93.6 kg

DRUGS (4)
  1. AVANDIA [Suspect]
     Dosage: 4MG PER DAY
     Route: 048
     Dates: start: 20010701, end: 20070601
  2. ALTACE [Concomitant]
  3. METFORMIN [Concomitant]
  4. RADIATION THERAPY [Concomitant]

REACTIONS (7)
  - CARDIAC ARREST [None]
  - CARDIAC FAILURE CONGESTIVE [None]
  - CARDIOGENIC SHOCK [None]
  - CORONARY ARTERY DISEASE [None]
  - HEART TRANSPLANT [None]
  - ISCHAEMIC CARDIOMYOPATHY [None]
  - MYOCARDIAL INFARCTION [None]
